FAERS Safety Report 5577379-0 (Version None)
Quarter: 2007Q4

REPORT INFORMATION
  Report Type: 
  Country: None (occurrence: None)
  Receive Date: 20071228
  Receipt Date: 20071219
  Transmission Date: 20080405
  Serious: Yes (Hospitalization)
  Sender: FDA-Public Use
  Company Number: FR-PFIZER INC-2007106816

PATIENT
  Sex: Male

DRUGS (3)
  1. DALACINE IV [Suspect]
     Indication: INFECTION
     Route: 042
     Dates: start: 20070525, end: 20070530
  2. AMOXICILLIN [Suspect]
     Indication: INFECTION
     Dosage: DAILY DOSE:6GRAM
     Route: 042
     Dates: start: 20070525, end: 20070529
  3. AMOXICILLIN [Suspect]
     Dosage: DAILY DOSE:3GRAM
     Route: 042
     Dates: start: 20070530, end: 20070607

REACTIONS (1)
  - HEPATITIS CHOLESTATIC [None]
